FAERS Safety Report 9125699 (Version 1)
Quarter: 2013Q1

REPORT INFORMATION
  Report Type: Spontaneous
  Country: BR (occurrence: BR)
  Receive Date: 20130228
  Receipt Date: 20130228
  Transmission Date: 20140127
  Serious: Yes (Hospitalization, Other)
  Sender: FDA-Public Use
  Company Number: BR-ABBOTT-13P-020-1053875-00

PATIENT
  Age: 64 None
  Sex: Female
  Weight: 66 kg

DRUGS (5)
  1. HUMIRA [Suspect]
     Indication: RHEUMATOID ARTHRITIS
     Route: 058
     Dates: start: 2010, end: 20121228
  2. MAREVAN [Suspect]
     Indication: THROMBOSIS
     Route: 048
     Dates: start: 20130102, end: 20130108
  3. ATENOLOL 50 MG + CLORTALIDONE 12.5 MG [Concomitant]
     Indication: HYPERTENSION
     Dosage: AT NIGHT
     Route: 048
  4. OMEPRAZOLE [Concomitant]
     Indication: GASTRITIS
     Route: 048
  5. CYMBALTA [Concomitant]
     Indication: DEPRESSION
     Route: 048

REACTIONS (9)
  - Peripheral embolism [Recovering/Resolving]
  - Injection site oedema [Recovered/Resolved]
  - Injection site discolouration [Recovered/Resolved]
  - Arthralgia [Recovering/Resolving]
  - Oedema peripheral [Recovered/Resolved]
  - Pain in extremity [Recovering/Resolving]
  - Burning sensation [Recovered/Resolved]
  - Hyperaesthesia [Recovering/Resolving]
  - Prothrombin level abnormal [Unknown]
